FAERS Safety Report 25584167 (Version 2)
Quarter: 2025Q3

REPORT INFORMATION
  Report Type: Spontaneous
  Country: EU (occurrence: EU)
  Receive Date: 20250721
  Receipt Date: 20250808
  Transmission Date: 20251021
  Serious: Yes (Other)
  Sender: ALKEM
  Company Number: EU-ALKEM LABORATORIES LIMITED-DE-ALKEM-2025-07324

PATIENT
  Age: 60 Year
  Sex: Female

DRUGS (3)
  1. LINEZOLID [Suspect]
     Active Substance: LINEZOLID
     Indication: Antibiotic therapy
     Route: 065
  2. LINEZOLID [Suspect]
     Active Substance: LINEZOLID
     Route: 065
  3. BETAMETHASONE [Concomitant]
     Active Substance: BETAMETHASONE
     Indication: Product used for unknown indication
     Route: 065

REACTIONS (2)
  - Dermatitis contact [Recovering/Resolving]
  - Disease progression [Recovering/Resolving]
